FAERS Safety Report 14392435 (Version 2)
Quarter: 2018Q1

REPORT INFORMATION
  Report Type: Spontaneous
  Country: IT (occurrence: IT)
  Receive Date: 20180116
  Receipt Date: 20180302
  Transmission Date: 20180509
  Serious: Yes (Other)
  Sender: FDA-Public Use
  Company Number: IT-PFIZER INC-2018015542

PATIENT
  Age: 14 Year
  Sex: Male
  Weight: 48 kg

DRUGS (25)
  1. ACICLOVIR [Concomitant]
     Active Substance: ACYCLOVIR
     Dosage: 1500 MG, 1X/DAY
     Route: 042
     Dates: start: 20170527, end: 20170626
  2. THYMOGLOBULINE [Suspect]
     Active Substance: LAPINE T-LYMPHOCYTE IMMUNE GLOBULIN
     Indication: ALLOGENIC BONE MARROW TRANSPLANTATION THERAPY
     Dosage: 150 MG, 1X/DAY
     Route: 042
     Dates: start: 20170523, end: 20170526
  3. MERREM [Concomitant]
     Active Substance: MEROPENEM
     Dosage: 3 G, UNK
     Dates: start: 20170520, end: 20170617
  4. ANTRA /00661201/ [Concomitant]
     Active Substance: OMEPRAZOLE
     Dosage: 40 MG, 1X/DAY
     Route: 042
     Dates: start: 20170520, end: 20170529
  5. PALONOSETRON HYDROCHLORIDE. [Concomitant]
     Active Substance: PALONOSETRON HYDROCHLORIDE
     Dosage: 1 DF, UNK
     Dates: start: 20170523, end: 20170523
  6. TRIASPORIN [Concomitant]
     Active Substance: ITRACONAZOLE
     Dosage: 20 ML, UNK
     Route: 048
     Dates: start: 20170520, end: 20170522
  7. FLUCONAZOLE. [Concomitant]
     Active Substance: FLUCONAZOLE
     Dosage: 500 MG, 1X/DAY
     Dates: start: 20170523, end: 20170531
  8. FLUDARABINE [Suspect]
     Active Substance: FLUDARABINE PHOSPHATE
     Indication: ALLOGENIC BONE MARROW TRANSPLANTATION THERAPY
     Dosage: 45 MG, 1X/DAY
     Route: 042
     Dates: start: 20170523, end: 20170526
  9. URSODEOXYCHOLIC ACID [Concomitant]
     Active Substance: URSODIOL
     Dosage: 600 MG, UNK
     Dates: start: 20170523, end: 20170626
  10. EMEND [Concomitant]
     Active Substance: APREPITANT
  11. MYCOSTATIN [Concomitant]
     Active Substance: NYSTATIN
     Dosage: 15 ML, UNK
     Dates: start: 20170520, end: 20170626
  12. METHOTREXATE. [Suspect]
     Active Substance: METHOTREXATE
     Route: 042
  13. CLINDAMYCIN. [Concomitant]
     Active Substance: CLINDAMYCIN
     Dosage: 900 MG, 1X/DAY
     Route: 042
     Dates: start: 20170520, end: 20170617
  14. FUROSEMIDE. [Concomitant]
     Active Substance: FUROSEMIDE
     Dosage: 80 MG, UNK
     Route: 042
     Dates: start: 20170523, end: 20170626
  15. URBASON /00049601/ [Concomitant]
     Active Substance: METHYLPREDNISOLONE
     Dosage: 40 MG, UNK
     Route: 042
     Dates: start: 20170523, end: 20170526
  16. ENDOXAN-BAXTER [Suspect]
     Active Substance: CYCLOPHOSPHAMIDE
     Indication: ALLOGENIC BONE MARROW TRANSPLANTATION THERAPY
     Dosage: 450 MG, 1X/DAY
     Route: 042
     Dates: start: 20170523, end: 20170526
  17. TRIMETON [Concomitant]
     Active Substance: CHLORPHENIRAMINE MALEATE
     Dosage: 20 MG, 1X/DAY
     Route: 042
     Dates: start: 20170523, end: 20170526
  18. DIFLUCAN [Concomitant]
     Active Substance: FLUCONAZOLE
     Dosage: 500 MG, UNK
     Dates: start: 20170520, end: 20170522
  19. HEPARIN [Concomitant]
     Active Substance: HEPARIN SODIUM
     Dosage: 5000 KIU, UNK
     Dates: start: 20170523, end: 20170619
  20. DIAMINOCILLINA [Concomitant]
     Active Substance: PENICILLIN G BENZATHINE
     Dosage: 1200000 MILLION IU, UNK
  21. BACTRIM [Concomitant]
     Active Substance: SULFAMETHOXAZOLE\TRIMETHOPRIM
     Dosage: 2 DF, UNK
     Dates: start: 20170523
  22. CICLOSPORIN [Concomitant]
     Active Substance: CYCLOSPORINE
     Dosage: 150 MG, UNK
     Dates: start: 20170527, end: 20170620
  23. TACHIPIRINA [Concomitant]
     Active Substance: ACETAMINOPHEN
     Dosage: 1 G, UNK
     Dates: start: 20170523, end: 20170526
  24. UROMITEXAN [Concomitant]
     Active Substance: MESNA
     Dosage: 150 MG, UNK
     Dates: start: 20170523, end: 20170526
  25. ZOVIRAX [Concomitant]
     Active Substance: ACYCLOVIR
     Dosage: 1500 MG, UNK
     Route: 042
     Dates: start: 20170520, end: 20170522

REACTIONS (2)
  - Diarrhoea [Recovered/Resolved]
  - Haematochezia [Recovered/Resolved]

NARRATIVE: CASE EVENT DATE: 20170604
